FAERS Safety Report 4784071-9 (Version None)
Quarter: 2005Q3

REPORT INFORMATION
  Report Type: 
  Country: None (occurrence: None)
  Receive Date: 20050928
  Receipt Date: 20050913
  Transmission Date: 20060218
  Serious: Yes (Death, Hospitalization, Other)
  Sender: FDA-Public Use
  Company Number: 2005-DE-03693GD

PATIENT
  Age: 10 Year
  Sex: Female

DRUGS (3)
  1. PROPRANOLOL [Suspect]
     Indication: HAEMORRHAGE
  2. PROPRANOLOL [Suspect]
     Indication: PROPHYLAXIS
  3. PROPRANOLOL [Suspect]
     Indication: VARICES OESOPHAGEAL

REACTIONS (6)
  - CARDIAC MURMUR [None]
  - CARDIO-RESPIRATORY ARREST [None]
  - HAEMATEMESIS [None]
  - HYPOTENSION [None]
  - OESOPHAGEAL VARICES HAEMORRHAGE [None]
  - PORTAL HYPERTENSIVE GASTROPATHY [None]
